FAERS Safety Report 4882440-X (Version None)
Quarter: 2006Q1

REPORT INFORMATION
  Report Type: 
  Country: None (occurrence: None)
  Receive Date: 20060113
  Receipt Date: 20051219
  Transmission Date: 20060701
  Serious: Yes (Hospitalization, Disabling)
  Sender: FDA-Public Use
  Company Number: 376772

PATIENT
  Age: 30 Year
  Sex: Male

DRUGS (1)
  1. ACCUTANE [Suspect]
     Indication: ACNE
     Dates: start: 19880815, end: 19890215

REACTIONS (92)
  - ACROCHORDON [None]
  - ANASTOMOTIC STENOSIS [None]
  - ANORECTAL DISORDER [None]
  - ANXIETY [None]
  - ASTHENIA [None]
  - BACK PAIN [None]
  - BLISTER [None]
  - BRADYCARDIA [None]
  - BRONCHITIS [None]
  - CERVICAL SPINAL STENOSIS [None]
  - CERVICOBRACHIAL SYNDROME [None]
  - CHEST DISCOMFORT [None]
  - COLITIS [None]
  - COLITIS ULCERATIVE [None]
  - CONSTIPATION [None]
  - CROHN'S DISEASE [None]
  - DEPRESSION [None]
  - DERMATITIS [None]
  - DIARRHOEA [None]
  - DISEASE RECURRENCE [None]
  - DIZZINESS [None]
  - DRUG HYPERSENSITIVITY [None]
  - DYSPLASIA [None]
  - DYSPNOEA [None]
  - DYSURIA [None]
  - EAR DISORDER [None]
  - EPISTAXIS [None]
  - ERUCTATION [None]
  - ERYTHEMA [None]
  - FATIGUE [None]
  - FIBROUS HISTIOCYTOMA [None]
  - FUNGAL SKIN INFECTION [None]
  - GASTROINTESTINAL DISORDER [None]
  - GLOSSODYNIA [None]
  - HAEMORRHOIDS [None]
  - HYPERHIDROSIS [None]
  - HYPERKERATOSIS [None]
  - HYPOGLYCAEMIA [None]
  - IMPAIRED WORK ABILITY [None]
  - INFLAMMATORY BOWEL DISEASE [None]
  - INFLUENZA LIKE ILLNESS [None]
  - INGUINAL HERNIA [None]
  - INSOMNIA [None]
  - INTERVERTEBRAL DISC PROTRUSION [None]
  - INTESTINAL HAEMORRHAGE [None]
  - IRRITABLE BOWEL SYNDROME [None]
  - LYMPHADENOPATHY [None]
  - MALIGNANT MELANOMA [None]
  - MALNUTRITION [None]
  - MELANOCYTIC NAEVUS [None]
  - MULTI-ORGAN DISORDER [None]
  - NAUSEA [None]
  - NECK PAIN [None]
  - NODULE [None]
  - PAIN [None]
  - PAIN IN EXTREMITY [None]
  - PALPITATIONS [None]
  - PANIC DISORDER [None]
  - PENILE ULCERATION [None]
  - PENIS DISORDER [None]
  - PHARYNGITIS [None]
  - POST PROCEDURAL COMPLICATION [None]
  - PROCTITIS ULCERATIVE [None]
  - PROSTATIC PAIN [None]
  - PROSTATITIS [None]
  - PRURITUS ANI [None]
  - PYREXIA [None]
  - RASH [None]
  - RASH PAPULAR [None]
  - RECTAL HAEMORRHAGE [None]
  - RECTAL SPASM [None]
  - RHINORRHOEA [None]
  - SEBORRHOEIC KERATOSIS [None]
  - SHOULDER PAIN [None]
  - SIGMOIDITIS [None]
  - SINUS DISORDER [None]
  - SINUSITIS [None]
  - SKIN DISORDER [None]
  - SKIN EXFOLIATION [None]
  - SKIN IRRITATION [None]
  - SKIN OEDEMA [None]
  - STRESS [None]
  - SUPRAVENTRICULAR EXTRASYSTOLES [None]
  - TACHYCARDIA [None]
  - THERAPY NON-RESPONDER [None]
  - THROMBOPHLEBITIS SUPERFICIAL [None]
  - TINEA PEDIS [None]
  - TREMOR [None]
  - UNEVALUABLE EVENT [None]
  - UPPER RESPIRATORY TRACT INFECTION [None]
  - URETHRITIS [None]
  - VENTRICULAR EXTRASYSTOLES [None]
